FAERS Safety Report 9192192 (Version 2)
Quarter: 2014Q1

REPORT INFORMATION
  Report Type: Spontaneous
  Country: US (occurrence: US)
  Receive Date: 20130327
  Receipt Date: 20140214
  Transmission Date: 20141002
  Serious: Yes (Death)
  Sender: FDA-Public Use
  Company Number: US-TEVA-394673USA

PATIENT
  Age: 51 Year
  Sex: Female

DRUGS (5)
  1. FENTANYL [Suspect]
     Indication: PRODUCT USED FOR UNKNOWN INDICATION
  2. TRAMADOL [Suspect]
  3. DIAZEPAM [Suspect]
  4. DIPHENHYDRAMINE [Suspect]
  5. ETHANOL [Suspect]

REACTIONS (3)
  - Drug abuse [Fatal]
  - Alcohol poisoning [Fatal]
  - Toxicity to various agents [Fatal]
